FAERS Safety Report 10179394 (Version 2)
Quarter: 2014Q2

REPORT INFORMATION
  Report Type: Spontaneous
  Country: US (occurrence: US)
  Receive Date: 20140519
  Receipt Date: 20140529
  Transmission Date: 20141212
  Serious: Yes (Hospitalization, Other)
  Sender: FDA-Public Use
  Company Number: US-PFIZER INC-2014132791

PATIENT
  Age: 53 Year
  Sex: Female
  Weight: 110.66 kg

DRUGS (4)
  1. ADVIL [Suspect]
     Indication: TOOTHACHE
     Dosage: UNK, AS NEEDED
     Dates: end: 201402
  2. ADVIL [Suspect]
     Indication: HEADACHE
  3. ADVIL [Suspect]
     Indication: BACK PAIN
  4. ADVIL [Suspect]
     Indication: PAIN IN EXTREMITY

REACTIONS (1)
  - Gastric ulcer [Unknown]
